FAERS Safety Report 4803943-X (Version None)
Quarter: 2005Q3

REPORT INFORMATION
  Report Type: 
  Country: None (occurrence: None)
  Receive Date: 20050920
  Receipt Date: 20050609
  Transmission Date: 20060218
  Serious: No
  Sender: FDA-Public Use
  Company Number: US-YAMANOUCHI-YPA20050303

PATIENT
  Age: 8 Year
  Sex: Male
  Weight: 24.9478 kg

DRUGS (1)
  1. VESICARE [Suspect]
     Indication: HYPERTONIC BLADDER
     Dosage: 5 MG QD PO
     Route: 048
     Dates: start: 20050501

REACTIONS (3)
  - DRY MOUTH [None]
  - EPISTAXIS [None]
  - NASAL DRYNESS [None]
